FAERS Safety Report 8505216-0 (Version None)
Quarter: 2012Q3

REPORT INFORMATION
  Report Type: 
  Country: None (occurrence: None)
  Receive Date: 20120712
  Receipt Date: 20120704
  Transmission Date: 20120928
  Serious: Yes (Other)
  Sender: FDA-Public Use
  Company Number: DE-ASTELLAS-2012EU004912

PATIENT
  Sex: Male

DRUGS (2)
  1. TACROLIMUS [Suspect]
     Dosage: UNK
     Route: 065
  2. PROGRAF [Suspect]
     Dosage: UNK
     Route: 065

REACTIONS (2)
  - HEPATIC CIRRHOSIS [None]
  - LIVER FUNCTION TEST ABNORMAL [None]
